FAERS Safety Report 14607566 (Version 2)
Quarter: 2018Q1

REPORT INFORMATION
  Report Type: Spontaneous
  Country: EG (occurrence: EG)
  Receive Date: 20180307
  Receipt Date: 20180316
  Transmission Date: 20180509
  Serious: Yes (Death, Other)
  Sender: FDA-Public Use
  Company Number: PHHY2018EG038003

PATIENT
  Age: 30 Year
  Sex: Female

DRUGS (1)
  1. CEFTRIAXONE. [Suspect]
     Active Substance: CEFTRIAXONE
     Indication: CYSTITIS
     Dosage: 1 G, QD
     Route: 042
     Dates: start: 20180305

REACTIONS (4)
  - Epistaxis [Unknown]
  - Death [Fatal]
  - Anaphylactic shock [Unknown]
  - Mouth haemorrhage [Unknown]

NARRATIVE: CASE EVENT DATE: 20180305
